FAERS Safety Report 18601360 (Version 2)
Quarter: 2020Q4

REPORT INFORMATION
  Report Type: Report from Study
  Country: None (occurrence: US)
  Receive Date: 20201210
  Receipt Date: 20201218
  Transmission Date: 20210114
  Serious: No
  Sender: FDA-Public Use
  Company Number: US-BIOVITRUM-2020US4827

PATIENT
  Sex: Female

DRUGS (1)
  1. KINERET [Suspect]
     Active Substance: ANAKINRA
     Indication: RHEUMATOID ARTHRITIS
     Route: 058
     Dates: start: 20200825

REACTIONS (7)
  - Drug ineffective [Unknown]
  - Pain [Unknown]
  - Joint swelling [Unknown]
  - Discomfort [Unknown]
  - Fatigue [Unknown]
  - Nasopharyngitis [Unknown]
  - Product use complaint [Unknown]
